FAERS Safety Report 22799132 (Version 4)
Quarter: 2023Q4

REPORT INFORMATION
  Report Type: Spontaneous
  Country: US (occurrence: US)
  Receive Date: 20230808
  Receipt Date: 20231019
  Transmission Date: 20240110
  Serious: Yes (Other)
  Sender: FDA-Public Use
  Company Number: US-002147023-NVSC2023US172555

PATIENT

DRUGS (1)
  1. ZOLGENSMA [Suspect]
     Active Substance: ONASEMNOGENE ABEPARVOVEC-XIOI
     Indication: Spinal muscular atrophy
     Dosage: )1.1 X 10^14 VECTOR GENOMES/KG), ONCE/ SINGLE
     Route: 042
     Dates: start: 201905, end: 201905

REACTIONS (1)
  - Scoliosis [Unknown]
